FAERS Safety Report 7675602-X (Version None)
Quarter: 2011Q3

REPORT INFORMATION
  Report Type: 
  Country: None (occurrence: None)
  Receive Date: 20110810
  Receipt Date: 20110804
  Transmission Date: 20111222
  Serious: Yes (Other)
  Sender: FDA-Public Use
  Company Number: US-PFIZER INC-2011178692

PATIENT
  Sex: Male

DRUGS (5)
  1. MULTAQ [Suspect]
     Indication: ATRIAL FIBRILLATION
     Dosage: 400 MG, 2X/DAY
     Route: 048
     Dates: start: 20100501
  2. FINASTERIDE [Concomitant]
     Indication: POLLAKIURIA
     Dosage: UNK
     Dates: start: 20100801
  3. MULTAQ [Suspect]
     Dosage: 400 MG, 1X/DAY
     Route: 048
     Dates: end: 20110101
  4. GABAPENTIN [Concomitant]
     Indication: PERIPHERAL NERVE INJURY
     Dosage: UNK
  5. LIPITOR [Suspect]
     Dosage: UNK
     Dates: start: 20100501, end: 20100701

REACTIONS (9)
  - LETHARGY [None]
  - RENAL NEOPLASM [None]
  - MUSCLE DISORDER [None]
  - PROSTATIC SPECIFIC ANTIGEN INCREASED [None]
  - ASTHENIA [None]
  - PROSTATE CANCER [None]
  - WEIGHT DECREASED [None]
  - NODULE [None]
  - HEART RATE DECREASED [None]
